FAERS Safety Report 20871178 (Version 3)
Quarter: 2022Q4

REPORT INFORMATION
  Report Type: Spontaneous
  Country: US (occurrence: US)
  Receive Date: 20220525
  Receipt Date: 20221116
  Transmission Date: 20230113
  Serious: Yes (Life-Threatening, Hospitalization, Other)
  Sender: FDA-Public Use
  Company Number: US-009507513-2205USA005316

PATIENT
  Age: 57 Year
  Sex: Male

DRUGS (6)
  1. KEYTRUDA [Suspect]
     Active Substance: PEMBROLIZUMAB
     Indication: Malignant melanoma
     Dosage: UNK, EVERY 3 WEEKS
     Route: 042
     Dates: start: 20211214, end: 20211214
  2. KEYTRUDA [Suspect]
     Active Substance: PEMBROLIZUMAB
     Dosage: UNK, EVERY 3 WEEKS
     Route: 042
     Dates: start: 20220104, end: 20220104
  3. KEYTRUDA [Suspect]
     Active Substance: PEMBROLIZUMAB
     Dosage: UNK, EVERY 3 WEEKS
     Route: 042
     Dates: start: 20220126, end: 20220126
  4. KEYTRUDA [Suspect]
     Active Substance: PEMBROLIZUMAB
     Dosage: UNK, EVERY 3 WEEKS
     Route: 042
     Dates: start: 20220215, end: 20220215
  5. KEYTRUDA [Suspect]
     Active Substance: PEMBROLIZUMAB
     Dosage: 200MG IV EVERY 21 DAYS
     Route: 042
  6. FLUTICASONE PROPIONATE\SALMETEROL XINAFOATE [Suspect]
     Active Substance: FLUTICASONE PROPIONATE\SALMETEROL XINAFOATE
     Dosage: UNK

REACTIONS (7)
  - Diabetic ketoacidosis [Unknown]
  - Type 2 diabetes mellitus [Unknown]
  - Pancreatic failure [Unknown]
  - Type 1 diabetes mellitus [Unknown]
  - Hypothyroidism [Unknown]
  - Product use issue [Unknown]
  - Product use issue [Unknown]

NARRATIVE: CASE EVENT DATE: 20220126
